FAERS Safety Report 5298478-7 (Version None)
Quarter: 2007Q2

REPORT INFORMATION
  Report Type: 
  Country: None (occurrence: None)
  Receive Date: 20070409
  Receipt Date: 20070329
  Transmission Date: 20071010
  Serious: Yes (Hospitalization)
  Sender: FDA-Public Use
  Company Number: 2007PV032301

PATIENT
  Age: 53 Year
  Sex: Female
  Weight: 92.0802 kg

DRUGS (5)
  1. BYETTA [Suspect]
     Indication: DIABETES MELLITUS NON-INSULIN-DEPENDENT
     Dosage: 5 MCG; BID; SC
     Route: 058
     Dates: start: 20070201
  2. CELEXA [Concomitant]
  3. METFORMIN HCL [Concomitant]
  4. AVANDIA [Concomitant]
  5. DIOVAN [Concomitant]

REACTIONS (7)
  - ARTERIOSCLEROSIS CORONARY ARTERY [None]
  - BLOOD PRESSURE DECREASED [None]
  - CHEST PAIN [None]
  - DECREASED APPETITE [None]
  - HEART RATE INCREASED [None]
  - LETHARGY [None]
  - WEIGHT DECREASED [None]
